FAERS Safety Report 6892849-0 (Version None)
Quarter: 2010Q3

REPORT INFORMATION
  Report Type: 
  Country: None (occurrence: None)
  Receive Date: 20100731
  Receipt Date: 20081022
  Transmission Date: 20110219
  Serious: Yes (Hospitalization)
  Sender: FDA-Public Use
  Company Number: DE-PFIZER INC-2007067427

PATIENT
  Sex: Male

DRUGS (5)
  1. CAMPTOSAR [Suspect]
     Indication: METASTATIC GASTRIC CANCER
     Dosage: ON DAYS 1,8,15,22,29,36 OF 6-WEEK CYCLE
     Route: 042
     Dates: start: 20070503
  2. CETUXIMAB [Suspect]
     Indication: METASTATIC GASTRIC CANCER
     Dosage: LOADING DOSE
     Route: 042
     Dates: start: 20070503
  3. CETUXIMAB [Suspect]
     Dosage: WEEKLY
     Route: 042
     Dates: start: 20070503
  4. FOLINIC ACID [Suspect]
     Indication: METASTATIC GASTRIC CANCER
     Dosage: ON DAYS 1,8,15,22,29,36 OF 6-WEEK CYCLE
     Route: 042
     Dates: start: 20070503
  5. FLUOROURACIL [Suspect]
     Indication: METASTATIC GASTRIC CANCER
     Dosage: ON DAYS 1,8,15,22,29,36 OF 6-WEEK CYCLE
     Route: 042
     Dates: start: 20070503

REACTIONS (1)
  - PELVIC VENOUS THROMBOSIS [None]
